FAERS Safety Report 7932025-3 (Version None)
Quarter: 2011Q4

REPORT INFORMATION
  Report Type: 
  Country: None (occurrence: None)
  Receive Date: 20111121
  Receipt Date: 20111111
  Transmission Date: 20120403
  Serious: Yes (Hospitalization)
  Sender: FDA-Public Use
  Company Number: JP-ASTRAZENECA-2011SE69015

PATIENT
  Age: 45 Year
  Sex: Female

DRUGS (1)
  1. ROPIVACAINE HYDROCHLORIDE [Suspect]
     Indication: POSTOPERATIVE ANALGESIA
     Dosage: DOSE UNKNOWN ONCE/SINGLE ADMINISTRATION
     Route: 008

REACTIONS (2)
  - PERIPHERAL NERVE INJURY [None]
  - MONOPARESIS [None]
